FAERS Safety Report 9130940 (Version 2)
Quarter: 2013Q2

REPORT INFORMATION
  Report Type: Report from Study
  Country: GB (occurrence: GB)
  Receive Date: 20130301
  Receipt Date: 20130502
  Transmission Date: 20140414
  Serious: Yes (Hospitalization)
  Sender: FDA-Public Use
  Company Number: GB-MILLENNIUM PHARMACEUTICALS, INC.-2013-01515

PATIENT
  Sex: 0

DRUGS (10)
  1. VELCADE [Suspect]
     Indication: PLASMA CELL MYELOMA
     Dosage: 1 MG/M2, UNK
     Route: 042
     Dates: start: 20130201
  2. VELCADE [Suspect]
     Dosage: 1 UNK, UNK
     Route: 042
     Dates: start: 20130305
  3. DOXORUBICIN [Suspect]
     Indication: PLASMA CELL MYELOMA
     Dosage: 9 MG/M2, UNK
     Route: 042
  4. DEXAMETHASONE [Suspect]
     Indication: PLASMA CELL MYELOMA
     Dosage: 40 MG, UNK
     Route: 065
  5. ONDANSETRON [Concomitant]
     Dosage: 8 MG, BID
  6. DOMPERIDONE [Concomitant]
     Dosage: 20 MG, QID
  7. ALLOPURINOL [Concomitant]
     Dosage: 100 MG, QD
  8. RANITIDINE [Concomitant]
     Dosage: 150 MG, BID
  9. ACICLOVIR [Concomitant]
     Dosage: 200 MG, BID
  10. CODEINE PHOSPHATE [Concomitant]
     Dosage: 30-60MG, QDS

REACTIONS (1)
  - Lung infection [Recovered/Resolved]
